FAERS Safety Report 12485455 (Version 1)
Quarter: 2016Q2

REPORT INFORMATION
  Report Type: Spontaneous
  Country: US (occurrence: US)
  Receive Date: 20160621
  Receipt Date: 20160621
  Transmission Date: 20160815
  Serious: No
  Sender: FDA-Public Use
  Company Number: US-SA-2015SA181011

PATIENT
  Age: 5 Year
  Sex: Male
  Weight: 18.59 kg

DRUGS (2)
  1. PANTHENOL/RETINOL/THIAMINE HYDROCHLORIDE/ASCORBIC ACID/ERGOCALCIFEROL/FOLIC ACID/RIBOFLAVIN/NICOTINA [Concomitant]
     Dosage: AS DIRECTED
     Dates: start: 20120227
  2. CEREZYME [Suspect]
     Active Substance: IMIGLUCERASE
     Indication: LIPIDOSIS
     Dosage: DOSE:13.3 UNIT(S)/KILOGRAM BODYWEIGHT
     Route: 041
     Dates: start: 20130819

REACTIONS (2)
  - Infusion site extravasation [Recovered/Resolved]
  - Nasopharyngitis [Recovered/Resolved]

NARRATIVE: CASE EVENT DATE: 20151025
